FAERS Safety Report 23647369 (Version 1)
Quarter: 2024Q1

REPORT INFORMATION
  Report Type: Report from Study
  Country: US (occurrence: US)
  Receive Date: 20240319
  Receipt Date: 20240319
  Transmission Date: 20240409
  Serious: Yes (Hospitalization)
  Sender: FDA-Public Use
  Company Number: US-ABBVIE-5680480

PATIENT
  Age: 63 Year
  Sex: Female
  Weight: 101.15 kg

DRUGS (1)
  1. DIVALPROEX SODIUM [Suspect]
     Active Substance: DIVALPROEX SODIUM
     Indication: Seizure
     Dosage: FORM STRENGTH: 250 MILLIGRAM?START DATE TEXT: 30 YEARS
     Route: 048

REACTIONS (3)
  - Focal dyscognitive seizures [Recovered/Resolved]
  - Muscle twitching [Recovered/Resolved]
  - Sinusitis [Unknown]

NARRATIVE: CASE EVENT DATE: 20240310
